FAERS Safety Report 7630464-1 (Version None)
Quarter: 2011Q3

REPORT INFORMATION
  Report Type: 
  Country: None (occurrence: None)
  Receive Date: 20110722
  Receipt Date: 20110711
  Transmission Date: 20111222
  Serious: Yes (Hospitalization)
  Sender: FDA-Public Use
  Company Number: DE-US-EMD SERONO, INC.-7069772

PATIENT
  Age: 25 Year

DRUGS (2)
  1. REBIF [Suspect]
     Dates: start: 20110601
  2. REBIF [Suspect]
     Indication: MULTIPLE SCLEROSIS
     Dates: start: 20110101, end: 20110601

REACTIONS (2)
  - ARTERIOSPASM CORONARY [None]
  - ACUTE CORONARY SYNDROME [None]
